FAERS Safety Report 22233318 (Version 1)
Quarter: 2023Q2

REPORT INFORMATION
  Report Type: Spontaneous
  Country: US (occurrence: None)
  Receive Date: 20230420
  Receipt Date: 20230420
  Transmission Date: 20230721
  Serious: No
  Sender: FDA-Public Use
  Company Number: US-ROCHE-3102045

PATIENT
  Sex: Female

DRUGS (3)
  1. ESBRIET [Suspect]
     Active Substance: PIRFENIDONE
     Indication: Idiopathic pulmonary fibrosis
     Dosage: TAKE 1 CAPSULE 3 TIMES DAILY FOR ONE WEEK THEN 2 CAPSULES 3 TIMES DAILY FOR 1 WEEK AND THEN 3 CAPSUL
     Route: 048
  2. MELOXICAM [Concomitant]
     Active Substance: MELOXICAM
  3. SYNTHROID [Concomitant]
     Active Substance: LEVOTHYROXINE SODIUM

REACTIONS (4)
  - Cough [Unknown]
  - Dyspnoea exertional [Unknown]
  - Arthralgia [Unknown]
  - Product dose omission in error [Unknown]
